FAERS Safety Report 5048978-X (Version None)
Quarter: 2006Q3

REPORT INFORMATION
  Report Type: 
  Country: None (occurrence: None)
  Receive Date: 20060712
  Receipt Date: 20051028
  Transmission Date: 20061208
  Serious: No
  Sender: FDA-Public Use
  Company Number: US-GLAXOSMITHKLINE-A0580118A

PATIENT
  Age: 56 Year
  Sex: Female

DRUGS (5)
  1. IMITREX [Suspect]
     Indication: MIGRAINE
     Dosage: 100MG AS REQUIRED
     Route: 048
  2. PROMETRIUM [Concomitant]
  3. GYNODIOL [Concomitant]
  4. CALTRATE [Concomitant]
  5. LORAZEPAM [Concomitant]

REACTIONS (2)
  - DRUG INEFFECTIVE [None]
  - NAUSEA [None]
